FAERS Safety Report 19408726 (Version 1)
Quarter: 2021Q2

REPORT INFORMATION
  Report Type: Spontaneous
  Country: DE (occurrence: DE)
  Receive Date: 20210613
  Receipt Date: 20210613
  Transmission Date: 20210717
  Serious: Yes (Other)
  Sender: FDA-Public Use
  Company Number: NVSC2021DE128048

PATIENT
  Age: 50 Year
  Sex: Female

DRUGS (1)
  1. TRIAMHEXAL 40 [Suspect]
     Active Substance: TRIAMCINOLONE ACETONIDE
     Indication: INTERVERTEBRAL DISC DISORDER
     Dosage: 40 MG (ROUTE: INJECTION)
     Route: 065
     Dates: start: 2017, end: 2019

REACTIONS (8)
  - Cushing^s syndrome [Unknown]
  - Ocular discomfort [Unknown]
  - Asthma [Unknown]
  - Neuralgia [Unknown]
  - Weight increased [Unknown]
  - Diabetes mellitus [Unknown]
  - Limb discomfort [Unknown]
  - Fluid retention [Unknown]
